FAERS Safety Report 6765694-4 (Version None)
Quarter: 2010Q2

REPORT INFORMATION
  Report Type: 
  Country: None (occurrence: None)
  Receive Date: 20100609
  Receipt Date: 20100527
  Transmission Date: 20101027
  Serious: Yes (Hospitalization)
  Sender: FDA-Public Use
  Company Number: 2010AL003134

PATIENT
  Age: 65 Year
  Sex: Female
  Weight: 100 kg

DRUGS (4)
  1. CITALOPRAM HYDROBROMIDE [Suspect]
     Dosage: PO
     Route: 048
  2. ATENOLOL [Concomitant]
  3. VENLAFAXINE [Concomitant]
  4. ENALAPRIL MALEATE [Concomitant]

REACTIONS (16)
  - BALANCE DISORDER [None]
  - BLOOD LACTIC ACID INCREASED [None]
  - CALCIUM IONISED INCREASED [None]
  - CARDIOGENIC SHOCK [None]
  - CONFUSIONAL STATE [None]
  - CONVULSION [None]
  - DRUG LEVEL ABOVE THERAPEUTIC [None]
  - DRUG TOXICITY [None]
  - ELECTROMECHANICAL DISSOCIATION [None]
  - LEFT VENTRICULAR HYPERTROPHY [None]
  - MULTIPLE DRUG OVERDOSE [None]
  - MYDRIASIS [None]
  - PULMONARY EMBOLISM [None]
  - RHYTHM IDIOVENTRICULAR [None]
  - UNRESPONSIVE TO STIMULI [None]
  - VENTRICULAR TACHYCARDIA [None]
